FAERS Safety Report 20614292 (Version 2)
Quarter: 2022Q2

REPORT INFORMATION
  Report Type: Report from Study
  Country: ES (occurrence: ES)
  Receive Date: 20220320
  Receipt Date: 20220615
  Transmission Date: 20220720
  Serious: Yes (Hospitalization)
  Sender: FDA-Public Use
  Company Number: ES-ABBVIE-22K-144-4311030-00

PATIENT
  Age: 65 Year
  Sex: Male

DRUGS (3)
  1. CARBIDOPA\LEVODOPA [Suspect]
     Active Substance: CARBIDOPA\LEVODOPA
     Indication: Parkinson^s disease
     Route: 050
     Dates: start: 20200625
  2. CARBIDOPA\LEVODOPA [Suspect]
     Active Substance: CARBIDOPA\LEVODOPA
  3. OTILONIUM BROMIDE [Concomitant]
     Active Substance: OTILONIUM BROMIDE
     Indication: Product used for unknown indication
     Dosage: BREAK FAST LUNCH-DINNER
     Route: 048

REACTIONS (5)
  - Mental disorder [Recovering/Resolving]
  - Gait disturbance [Recovered/Resolved]
  - Muscle rigidity [Recovered/Resolved]
  - Freezing phenomenon [Recovered/Resolved]
  - Therapeutic product effect incomplete [Unknown]

NARRATIVE: CASE EVENT DATE: 20220301
